FAERS Safety Report 6534102-0 (Version None)
Quarter: 2010Q1

REPORT INFORMATION
  Report Type: 
  Country: None (occurrence: None)
  Receive Date: 20100112
  Receipt Date: 20091229
  Transmission Date: 20100710
  Serious: Yes (Hospitalization)
  Sender: FDA-Public Use
  Company Number: FR-KINGPHARMUSA00001-K200901628

PATIENT
  Age: 86 Year
  Sex: Female

DRUGS (7)
  1. ALTACE [Suspect]
     Dosage: UNK
     Route: 048
     Dates: end: 20090826
  2. KARDEGIC [Suspect]
     Dosage: UNK
     Route: 048
  3. LASILIX [Suspect]
     Dosage: UNK
     Route: 048
     Dates: end: 20090826
  4. CALCIUM-SANDOZ [Concomitant]
     Dosage: UNK
     Dates: end: 20090826
  5. FOSAVANCE [Concomitant]
     Dosage: UNK
     Dates: end: 20090826
  6. LERCANIDIPINE [Concomitant]
     Dosage: UNK
     Dates: end: 20090826
  7. ARICEPT [Concomitant]
     Dosage: UNK

REACTIONS (5)
  - DEHYDRATION [None]
  - DRUG INTERACTION [None]
  - GENERAL PHYSICAL HEALTH DETERIORATION [None]
  - RENAL FAILURE [None]
  - WEIGHT DECREASED [None]
